FAERS Safety Report 15603122 (Version 1)
Quarter: 2018Q4

REPORT INFORMATION
  Report Type: Spontaneous
  Country: US (occurrence: US)
  Receive Date: 20181106
  Receipt Date: 20181106
  Transmission Date: 20190205
  Serious: Yes (Hospitalization, Other)
  Sender: FDA-Public Use
  Company Number: None

PATIENT
  Age: 64 Year
  Sex: Male
  Weight: 67.13 kg

DRUGS (2)
  1. RIBAVIRIN. [Suspect]
     Active Substance: RIBAVIRIN
     Indication: HEPATITIS C
     Dosage: ?          OTHER FREQUENCY:AT PM;?
     Route: 048
     Dates: start: 20180627, end: 20180826
  2. NAFCILLIN [Suspect]
     Active Substance: NAFCILLIN\NAFCILLIN SODIUM
     Indication: STAPHYLOCOCCAL BACTERAEMIA
     Dates: start: 20180819, end: 20180826

REACTIONS (6)
  - Fatigue [None]
  - Thrombocytopenia [None]
  - Anaemia [None]
  - Haemolytic anaemia [None]
  - Back pain [None]
  - International normalised ratio abnormal [None]

NARRATIVE: CASE EVENT DATE: 20180826
